FAERS Safety Report 8335413-9 (Version None)
Quarter: 2012Q2

REPORT INFORMATION
  Report Type: 
  Country: None (occurrence: None)
  Receive Date: 20120503
  Receipt Date: 20120425
  Transmission Date: 20120825
  Serious: Yes (Life-Threatening, Hospitalization, Other)
  Sender: FDA-Public Use
  Company Number: US-RB-038361-12

PATIENT
  Age: 45 Year
  Sex: Female

DRUGS (2)
  1. SUBOXONE [Suspect]
     Indication: DRUG DEPENDENCE
     Dosage: 16 MG DAILY
     Route: 060
     Dates: start: 20080101, end: 20100101
  2. METHADONE HCL [Concomitant]
     Indication: PRODUCT USED FOR UNKNOWN INDICATION
     Dosage: DOSING DETAILS UNKNOWN
     Route: 065

REACTIONS (4)
  - PNEUMONIA [None]
  - AMNESIA [None]
  - RESPIRATORY ARREST [None]
  - PULMONARY OEDEMA [None]
